FAERS Safety Report 7514955-X (Version None)
Quarter: 2011Q2

REPORT INFORMATION
  Report Type: 
  Country: None (occurrence: None)
  Receive Date: 20110425
  Receipt Date: 20100115
  Transmission Date: 20111010
  Serious: Yes (Hospitalization)
  Sender: FDA-Public Use
  Company Number: MC201000023

PATIENT
  Age: 74 Year
  Sex: Male
  Weight: 70 kg

DRUGS (2)
  1. ANGIOMAX [Suspect]
     Dosage: 52 MG, BOLUS, INTRAVENOUS, 19.2 ML, HR, INTRAVENOUS
     Route: 042
     Dates: start: 20060601, end: 20060601
  2. ANGIOMAX [Suspect]
     Dosage: 52 MG, BOLUS, INTRAVENOUS, 19.2 ML, HR, INTRAVENOUS
     Route: 042
     Dates: start: 20060601, end: 20060601

REACTIONS (1)
  - CHEST PAIN [None]
